APPROVED DRUG PRODUCT: MAGNESIUM SULFATE
Active Ingredient: MAGNESIUM SULFATE
Strength: 5GM/10ML (500MG/ML)
Dosage Form/Route: SOLUTION;INTRAMUSCULAR, INTRAVENOUS
Application: N019316 | Product #001 | TE Code: AP
Applicant: FRESENIUS KABI USA LLC
Approved: Sep 8, 1986 | RLD: Yes | RS: Yes | Type: RX